FAERS Safety Report 12354196 (Version 2)
Quarter: 2017Q1

REPORT INFORMATION
  Report Type: Spontaneous
  Country: US (occurrence: US)
  Receive Date: 20160511
  Receipt Date: 20170301
  Transmission Date: 20170428
  Serious: Yes (Other)
  Sender: FDA-Public Use
  Company Number: US-SUN PHARMACEUTICAL INDUSTRIES LTD-2016US-115829

PATIENT
  Age: 66 Year
  Sex: Female

DRUGS (3)
  1. ALENDRONIC ACID [Suspect]
     Active Substance: ALENDRONIC ACID
     Indication: OSTEOPENIA
     Dosage: UNK
     Route: 065
  2. IBANDRONIC [Suspect]
     Active Substance: IBANDRONIC ACID
     Indication: OSTEOPENIA
     Dosage: UNK
     Route: 065
  3. PANTOPRAZOLE [Suspect]
     Active Substance: PANTOPRAZOLE SODIUM
     Indication: OESOPHAGEAL ULCER PERFORATION
     Dosage: 40 MG, DAILY
     Route: 065

REACTIONS (4)
  - Atypical femur fracture [Recovering/Resolving]
  - Hypocalcaemia [Recovering/Resolving]
  - Hyperparathyroidism secondary [Recovering/Resolving]
  - Vitamin D deficiency [Recovering/Resolving]
